FAERS Safety Report 9567550 (Version 1)
Quarter: 2013Q3

REPORT INFORMATION
  Report Type: Spontaneous
  Country: US (occurrence: US)
  Receive Date: 20130930
  Receipt Date: 20130930
  Transmission Date: 20140515
  Serious: Yes (Other)
  Sender: FDA-Public Use
  Company Number: US-AMGEN-USASP2012083098

PATIENT
  Age: 65 Year
  Sex: Female

DRUGS (8)
  1. ENBREL [Suspect]
     Indication: PRODUCT USED FOR UNKNOWN INDICATION
     Dosage: 50 MG, QWK
     Route: 058
  2. KEPPRA [Concomitant]
     Indication: CONVULSION
     Dosage: 500 MG, UNK
     Route: 048
  3. HYDROCORT                          /00028602/ [Concomitant]
     Indication: HYPOTHALAMO-PITUITARY DISORDER
     Dosage: 20 MG, UNK
     Route: 048
  4. TOPROL [Concomitant]
     Dosage: 50 MG, UNK
     Route: 048
  5. LEVOXYL [Concomitant]
     Indication: HYPOTHALAMO-PITUITARY DISORDER
     Dosage: 88 MCG, UNK
     Route: 048
  6. HYDROCORTISONE [Concomitant]
     Indication: HYPOTHALAMO-PITUITARY DISORDER
     Dosage: 5 MG, UNK
     Route: 048
  7. VITAMIN D                          /00107901/ [Concomitant]
     Dosage: 1000 UNIT, UNK
     Route: 048
  8. ASPIRIN [Concomitant]
     Dosage: 81 MG, UNK
     Route: 048

REACTIONS (2)
  - Convulsion [Unknown]
  - Nightmare [Unknown]
